FAERS Safety Report 19674109 (Version 2)
Quarter: 2022Q3

REPORT INFORMATION
  Report Type: Spontaneous
  Country: US (occurrence: None)
  Receive Date: 20210809
  Receipt Date: 20220728
  Transmission Date: 20221026
  Serious: No
  Sender: FDA-Public Use
  Company Number: US-ROCHE-2693357

PATIENT
  Sex: Female
  Weight: 59.020 kg

DRUGS (3)
  1. PERJETA [Suspect]
     Active Substance: PERTUZUMAB
     Indication: Ovarian cyst
     Route: 042
     Dates: start: 20200825
  2. METFORMIN HYDROCHLORIDE [Concomitant]
     Active Substance: METFORMIN HYDROCHLORIDE
     Dosage: ONGOING: UNKNOWN
     Route: 048
     Dates: start: 20200214
  3. PRAVASTATIN [Concomitant]
     Active Substance: PRAVASTATIN
     Dosage: ONGOING: UNKNOWN
     Route: 048
     Dates: start: 20200214

REACTIONS (2)
  - Off label use [Unknown]
  - Diarrhoea [Unknown]
